FAERS Safety Report 14230805 (Version 1)
Quarter: 2017Q4

REPORT INFORMATION
  Report Type: Spontaneous
  Country: US (occurrence: US)
  Receive Date: 20171128
  Receipt Date: 20171128
  Transmission Date: 20180321
  Serious: No
  Sender: FDA-Public Use
  Company Number: US-JNJFOC-20171015875

PATIENT
  Sex: Female
  Weight: 39.92 kg

DRUGS (2)
  1. ZYRTEC [Suspect]
     Active Substance: CETIRIZINE HYDROCHLORIDE
     Indication: OBSTRUCTIVE AIRWAYS DISORDER
     Dosage: PATIENT TAKES 1 AT NIGHT AND IF NEEDED, SHE TAKES ANOTHER IN MORNING IF SHE IS SHORT ON AIR.
     Route: 048
  2. ZYRTEC [Suspect]
     Active Substance: CETIRIZINE HYDROCHLORIDE
     Indication: DYSPNOEA
     Dosage: PATIENT TAKES 1 AT NIGHT AND IF NEEDED, SHE TAKES ANOTHER IN MORNING IF SHE IS SHORT ON AIR.
     Route: 048

REACTIONS (3)
  - Off label use [Unknown]
  - Product use in unapproved indication [Unknown]
  - Prescribed overdose [Unknown]
